FAERS Safety Report 11080176 (Version 5)
Quarter: 2015Q4

REPORT INFORMATION
  Report Type: Report from Study
  Country: US (occurrence: US)
  Receive Date: 20150430
  Receipt Date: 20151020
  Transmission Date: 20160304
  Serious: Yes (Hospitalization)
  Sender: FDA-Public Use
  Company Number: US-ACTELION-A-NJ2015-116989

PATIENT
  Age: 60 Year
  Sex: Female

DRUGS (6)
  1. TRACLEER [Suspect]
     Active Substance: BOSENTAN
     Indication: PULMONARY ARTERIAL HYPERTENSION
     Dosage: UNK
     Route: 048
  2. SILDENAFIL. [Concomitant]
     Active Substance: SILDENAFIL
  3. RIOCIGUAT [Concomitant]
     Active Substance: RIOCIGUAT
     Indication: DIARRHOEA
  4. REMODULIN [Concomitant]
     Active Substance: TREPROSTINIL
     Route: 048
  5. TREPROSTINIL DIOLAMIN [Concomitant]
     Active Substance: TREPROSTINIL DIOLAMINE
  6. COUMADIN [Concomitant]
     Active Substance: WARFARIN SODIUM

REACTIONS (10)
  - Blood potassium decreased [Unknown]
  - Diarrhoea [Unknown]
  - Nausea [Unknown]
  - Sneezing [Unknown]
  - Fatigue [Unknown]
  - Abdominal discomfort [Unknown]
  - Dehydration [Unknown]
  - Constipation [Unknown]
  - Gastritis [Unknown]
  - Decreased appetite [Unknown]
